FAERS Safety Report 7683045-8 (Version None)
Quarter: 2011Q3

REPORT INFORMATION
  Report Type: 
  Country: None (occurrence: None)
  Receive Date: 20110815
  Receipt Date: 20110810
  Transmission Date: 20111222
  Serious: Yes (Death, Other)
  Sender: FDA-Public Use
  Company Number: DK-ASTRAZENECA-2011SE47837

PATIENT
  Age: 45 Year

DRUGS (6)
  1. QUETIAPINE [Suspect]
     Route: 048
  2. SALICYLIC ACID [Suspect]
  3. CODEINE SULFATE [Suspect]
  4. LEVOMEPROMAZINE [Suspect]
  5. AMLODIPINE [Suspect]
  6. KETOBEMIDONE [Suspect]

REACTIONS (2)
  - DEATH [None]
  - TOXICITY TO VARIOUS AGENTS [None]
